FAERS Safety Report 4429818-6 (Version None)
Quarter: 2004Q3

REPORT INFORMATION
  Report Type: 
  Country: None (occurrence: None)
  Receive Date: 20040816
  Receipt Date: 20040803
  Transmission Date: 20050211
  Serious: Yes (Hospitalization)
  Sender: FDA-Public Use
  Company Number: 2004052761

PATIENT
  Age: 56 Year
  Sex: Female
  Weight: 81.6475 kg

DRUGS (20)
  1. LIPITOR [Suspect]
     Indication: BLOOD CHOLESTEROL INCREASED
     Dosage: ORAL
     Route: 047
     Dates: end: 20040401
  2. SIMVASTATIN [Suspect]
     Indication: BLOOD CHOLESTEROL INCREASED
     Dosage: 80 MG (80 MG, 1 IN 1 D), ORAL
     Route: 048
     Dates: end: 20040401
  3. GEMFIBROZIL (GEMFIBROXIL) [Concomitant]
  4. PIOGLITAZONE HCL [Concomitant]
  5. LISINOPRIL [Concomitant]
  6. DILTIAZEM [Concomitant]
  7. LEVOTHYROXINE SODIUM [Concomitant]
  8. METHADONE HYDROCHLORIDE (METHADONE HYDROCHLORIDE) [Concomitant]
  9. GABAPENTIN [Concomitant]
  10. VENLAFAXINE HCL [Concomitant]
  11. CLONAZEPAM [Concomitant]
  12. PANTOPRAZOLE (PANTOPRAZOLE) [Concomitant]
  13. METOCLOPRAMIDE [Concomitant]
  14. ETODOLAC [Concomitant]
  15. BUSPIRONE HCL [Concomitant]
  16. CYCLOBENZAPRINE HYDROCHLORIDE [Concomitant]
  17. ISOSORBIDE (ISOSORBIDE) [Concomitant]
  18. CALCIUM (CALCIUM) [Concomitant]
  19. CYANOCOBALAMIN (CYANOCOBALAMIN) [Concomitant]
  20. ASPIRIN [Concomitant]

REACTIONS (8)
  - ACTIVITIES OF DAILY LIVING IMPAIRED [None]
  - BLOOD CREATINE PHOSPHOKINASE INCREASED [None]
  - DIFFICULTY IN WALKING [None]
  - DYSSTASIA [None]
  - FALL [None]
  - MYOPATHY [None]
  - THERAPY NON-RESPONDER [None]
  - TREMOR [None]
